FAERS Safety Report 7501752-4 (Version None)
Quarter: 2011Q2

REPORT INFORMATION
  Report Type: 
  Country: None (occurrence: None)
  Receive Date: 20110525
  Receipt Date: 20110516
  Transmission Date: 20111010
  Serious: Yes (Hospitalization)
  Sender: FDA-Public Use
  Company Number: US-BRISTOL-MYERS SQUIBB COMPANY-15747686

PATIENT
  Age: 16 Year
  Sex: Male

DRUGS (5)
  1. LORAZEPAM [Suspect]
     Indication: ABNORMAL BEHAVIOUR
  2. HALOPERIDOL [Suspect]
     Indication: ABNORMAL BEHAVIOUR
  3. ARIPIPRAZOLE [Suspect]
     Indication: ABNORMAL BEHAVIOUR
  4. BENZTROPINE MESYLATE [Suspect]
     Indication: ABNORMAL BEHAVIOUR
  5. DIPHENHYDRAMINE HCL [Suspect]
     Indication: ABNORMAL BEHAVIOUR

REACTIONS (1)
  - ENCEPHALITIS [None]
